FAERS Safety Report 7541385-7 (Version None)
Quarter: 2011Q2

REPORT INFORMATION
  Report Type: 
  Country: None (occurrence: None)
  Receive Date: 20110613
  Receipt Date: 20110604
  Transmission Date: 20111010
  Serious: Yes (Hospitalization)
  Sender: FDA-Public Use
  Company Number: US-BIOGENIDEC-2011BI019078

PATIENT
  Age: 55 Year
  Sex: Male

DRUGS (1)
  1. AVONEX [Suspect]
     Indication: MULTIPLE SCLEROSIS
     Route: 030
     Dates: start: 20080607

REACTIONS (3)
  - WOUND DEHISCENCE [None]
  - INTERVERTEBRAL DISC PROTRUSION [None]
  - URINARY RETENTION [None]
